FAERS Safety Report 19827645 (Version 1)
Quarter: 2021Q3

REPORT INFORMATION
  Report Type: Spontaneous
  Country: IT (occurrence: IT)
  Receive Date: 20210914
  Receipt Date: 20210914
  Transmission Date: 20211014
  Serious: Yes (Other)
  Sender: FDA-Public Use
  Company Number: IT-MYLANLABS-2021M1058731

PATIENT
  Age: 73 Year
  Sex: Male
  Weight: 55 kg

DRUGS (4)
  1. CAPECITABINE. [Suspect]
     Active Substance: CAPECITABINE
     Indication: METASTASES TO LYMPH NODES
     Dosage: 500 MILLIGRAM, BID
     Route: 048
     Dates: start: 2020, end: 202006
  2. CETUXIMAB. [Concomitant]
     Active Substance: CETUXIMAB
     Indication: METASTASES TO CENTRAL NERVOUS SYSTEM
     Dosage: 250 MILLIGRAM/SQ. METER, QW
     Route: 042
     Dates: start: 2020, end: 202006
  3. CETUXIMAB. [Concomitant]
     Active Substance: CETUXIMAB
     Indication: METASTASES TO LYMPH NODES
     Dosage: 400 MILLIGRAM/SQ. METER, TOTAL
     Route: 042
     Dates: start: 2020
  4. CAPECITABINE. [Suspect]
     Active Substance: CAPECITABINE
     Indication: METASTASES TO CENTRAL NERVOUS SYSTEM

REACTIONS (3)
  - Toxicity to various agents [Unknown]
  - Superinfection [Unknown]
  - Palmar-plantar erythrodysaesthesia syndrome [Unknown]

NARRATIVE: CASE EVENT DATE: 202006
